FAERS Safety Report 9898726 (Version 1)
Quarter: 2014Q1

REPORT INFORMATION
  Report Type: Spontaneous
  Country: FR (occurrence: FR)
  Receive Date: 20140214
  Receipt Date: 20140214
  Transmission Date: 20141002
  Serious: Yes (Other)
  Sender: FDA-Public Use
  Company Number: FR-009507513-1402FRA003398

PATIENT
  Age: 88 Year
  Sex: Female

DRUGS (5)
  1. HYZAAR 50 MG/12,5 MG, COMPRIM? PELLICUL? [Suspect]
     Dosage: 1 DF, ONCE
     Route: 048
     Dates: start: 20140125, end: 20140125
  2. LOXEN [Suspect]
     Dosage: 1 DF, ONCE
     Route: 048
     Dates: start: 20140125, end: 20140125
  3. URAPIDIL [Suspect]
     Dosage: 60 MG, ONCE
     Route: 048
     Dates: start: 20140125, end: 20140125
  4. TARDYFERON [Suspect]
     Dosage: 80 MG, ONCE
     Route: 048
     Dates: start: 20140125, end: 20140125
  5. NOVO-NORM [Suspect]
     Dosage: 1 DF, ONCE
     Route: 048
     Dates: start: 20140125, end: 20140125

REACTIONS (3)
  - Hypotension [Recovered/Resolved]
  - Wrong patient received medication [Recovered/Resolved]
  - Medication error [Recovered/Resolved]
